FAERS Safety Report 7525398-7 (Version None)
Quarter: 2011Q2

REPORT INFORMATION
  Report Type: 
  Country: None (occurrence: None)
  Receive Date: 20110602
  Receipt Date: 20110602
  Transmission Date: 20111010
  Serious: No
  Sender: FDA-Public Use
  Company Number: None

PATIENT
  Age: 64 Year
  Sex: Female

DRUGS (1)
  1. LATANOPROST [Suspect]

REACTIONS (3)
  - PAIN [None]
  - PRODUCT SUBSTITUTION ISSUE [None]
  - BURNING SENSATION [None]
